FAERS Safety Report 6539220-9 (Version None)
Quarter: 2010Q1

REPORT INFORMATION
  Report Type: 
  Country: None (occurrence: None)
  Receive Date: 20100115
  Receipt Date: 20100105
  Transmission Date: 20100710
  Serious: Yes (Death)
  Sender: FDA-Public Use
  Company Number: NL-ELI_LILLY_AND_COMPANY-NL201001000701

PATIENT
  Sex: Female

DRUGS (6)
  1. CYMBALTA [Suspect]
     Indication: DEPRESSION
     Dosage: 15 MG, DAILY (1/D)
     Route: 065
     Dates: start: 20091210
  2. ALPRAZOLAM [Concomitant]
     Dosage: 0.5 MG, DAILY (1/D)
     Route: 065
     Dates: start: 20091001
  3. ACETYLSALICYLIC ACID [Concomitant]
     Dosage: 80 MG,
     Route: 065
  4. ACTOS [Concomitant]
     Dosage: 30 MG, DAILY (1/D)
     Route: 065
  5. METFORMIN [Concomitant]
     Dosage: 500 MG, 2/D
     Route: 065
  6. GLIMEPIRIDE [Concomitant]
     Dosage: 4 MG, DAILY (1/D)
     Route: 065

REACTIONS (1)
  - CEREBRAL HAEMATOMA [None]
